FAERS Safety Report 8249775-4 (Version None)
Quarter: 2012Q2

REPORT INFORMATION
  Report Type: 
  Country: None (occurrence: None)
  Receive Date: 20120402
  Receipt Date: 20120319
  Transmission Date: 20120825
  Serious: Yes (Disabling)
  Sender: FDA-Public Use
  Company Number: GB-MYLANLABS-2012S1006025

PATIENT
  Age: 24 Year
  Sex: Female
  Weight: 60 kg

DRUGS (1)
  1. ISOTRETINOIN [Suspect]
     Indication: PRODUCT USED FOR UNKNOWN INDICATION
     Route: 048
     Dates: start: 20111209, end: 20120220

REACTIONS (4)
  - ALANINE AMINOTRANSFERASE INCREASED [None]
  - HALLUCINATION, OLFACTORY [None]
  - ABDOMINAL PAIN [None]
  - CONSTIPATION [None]
